FAERS Safety Report 18894436 (Version 1)
Quarter: 2021Q1

REPORT INFORMATION
  Report Type: Report from Study
  Country: US (occurrence: US)
  Receive Date: 20210215
  Receipt Date: 20210215
  Transmission Date: 20210420
  Serious: Yes (Hospitalization)
  Sender: FDA-Public Use
  Company Number: US-ELI_LILLY_AND_COMPANY-US202102002649

PATIENT
  Age: 39 Year
  Sex: Male
  Weight: 90.7 kg

DRUGS (3)
  1. HALDOL DECANOATE [Concomitant]
     Active Substance: HALOPERIDOL DECANOATE
     Indication: PRODUCT USED FOR UNKNOWN INDICATION
     Dosage: 2.5 ML, UNKNOWN
     Route: 065
  2. ZYPREXA RELPREVV [Suspect]
     Active Substance: OLANZAPINE PAMOATE
     Dosage: 405 MG, EVERY FOUR WEEKS
     Route: 030
     Dates: start: 20210202
  3. ZYPREXA RELPREVV [Suspect]
     Active Substance: OLANZAPINE PAMOATE
     Indication: SCHIZOPHRENIA
     Dosage: 405 MG, EVERY FOUR WEEKS
     Route: 030
     Dates: start: 20190228

REACTIONS (11)
  - Dysarthria [Unknown]
  - Sedation [Unknown]
  - Aggression [Unknown]
  - Agitation [Unknown]
  - Disorientation [Unknown]
  - Confusional state [Unknown]
  - Asthenia [Unknown]
  - Post-injection delirium sedation syndrome [Unknown]
  - Respiratory depression [Unknown]
  - Depressed level of consciousness [Unknown]
  - Tachycardia [Unknown]

NARRATIVE: CASE EVENT DATE: 20210202
